FAERS Safety Report 8272812-8 (Version None)
Quarter: 2012Q2

REPORT INFORMATION
  Report Type: 
  Country: None (occurrence: None)
  Receive Date: 20120411
  Receipt Date: 20120329
  Transmission Date: 20120825
  Serious: No
  Sender: FDA-Public Use
  Company Number: US-BIOGENIDEC-2011BI048165

PATIENT
  Sex: Female

DRUGS (1)
  1. TYSABRI [Suspect]
     Indication: MULTIPLE SCLEROSIS
     Route: 042
     Dates: start: 20111220, end: 20120130

REACTIONS (6)
  - MUSCULOSKELETAL PAIN [None]
  - ADVERSE REACTION [None]
  - INFUSION RELATED REACTION [None]
  - BACK PAIN [None]
  - PRURITUS [None]
  - DRUG INEFFECTIVE [None]
